FAERS Safety Report 6411051-X (Version None)
Quarter: 2009Q4

REPORT INFORMATION
  Report Type: 
  Country: None (occurrence: None)
  Receive Date: 20091021
  Receipt Date: 20091021
  Transmission Date: 20100525
  Serious: Yes (Other)
  Sender: FDA-Public Use
  Company Number: None

PATIENT
  Age: 75 Year
  Sex: Male
  Weight: 102.0593 kg

DRUGS (1)
  1. CHANTIX [Suspect]
     Indication: SMOKING CESSATION THERAPY
     Dosage: PER PACKAGING INSTRUCTIONS
     Dates: start: 20070826, end: 20080315

REACTIONS (3)
  - ABNORMAL BEHAVIOUR [None]
  - SEXUAL ABUSE [None]
  - TOBACCO WITHDRAWAL SYMPTOMS [None]
